FAERS Safety Report 6670980-2 (Version None)
Quarter: 2010Q2

REPORT INFORMATION
  Report Type: 
  Country: None (occurrence: None)
  Receive Date: 20100407
  Receipt Date: 20100329
  Transmission Date: 20101027
  Serious: Yes (Hospitalization, Congenital Anomaly)
  Sender: FDA-Public Use
  Company Number: GB-ASTRAZENECA-2010SE13737

PATIENT
  Sex: Male
  Weight: 1.7 kg

DRUGS (4)
  1. SEROQUEL [Suspect]
     Route: 064
  2. BUDESONIDE [Concomitant]
     Route: 064
  3. CITALOPRAM HYDROBROMIDE [Concomitant]
     Route: 064
  4. FOLIC ACID [Concomitant]
     Route: 064

REACTIONS (3)
  - CHOANAL ATRESIA [None]
  - MULTIPLE CARDIAC DEFECTS [None]
  - OESOPHAGEAL ATRESIA [None]
